FAERS Safety Report 5045013-4 (Version None)
Quarter: 2006Q3

REPORT INFORMATION
  Report Type: 
  Country: None (occurrence: None)
  Receive Date: 20060707
  Receipt Date: 20060628
  Transmission Date: 20061208
  Serious: Yes (Other)
  Sender: FDA-Public Use
  Company Number: PHBS2006GT09705

PATIENT
  Age: 60 Year
  Sex: Female

DRUGS (2)
  1. TRILEPTAL [Suspect]
     Dosage: 300 MG, Q8H
     Route: 048
  2. DIOVAN HCT [Suspect]
     Route: 048

REACTIONS (1)
  - DEPRESSION [None]
